FAERS Safety Report 17093236 (Version 1)
Quarter: 2019Q4

REPORT INFORMATION
  Report Type: Report from Study
  Country: NL (occurrence: NL)
  Receive Date: 20191129
  Receipt Date: 20191129
  Transmission Date: 20200122
  Serious: Yes (Death, Hospitalization)
  Sender: FDA-Public Use
  Company Number: NL-ASTRAZENECA-2019SF69762

PATIENT
  Age: 23073 Day
  Sex: Female

DRUGS (1)
  1. FASLODEX [Suspect]
     Active Substance: FULVESTRANT
     Indication: BREAST CANCER METASTATIC
     Dosage: 500 MG (1.00 X PER 4 WEEKS)
     Route: 030
     Dates: start: 20190220, end: 20191028

REACTIONS (4)
  - Streptococcal infection [Unknown]
  - Death [Fatal]
  - Liver function test increased [Unknown]
  - Ascites [Unknown]

NARRATIVE: CASE EVENT DATE: 20191118
